FAERS Safety Report 6922074-6 (Version None)
Quarter: 2010Q3

REPORT INFORMATION
  Report Type: 
  Country: None (occurrence: None)
  Receive Date: 20100812
  Receipt Date: 20100809
  Transmission Date: 20110219
  Serious: Yes (Hospitalization)
  Sender: FDA-Public Use
  Company Number: BE-B.I. PHARMACEUTICALS,INC./RIDGEFIELD-2010-BL-00076BL

PATIENT
  Sex: Female
  Weight: 88 kg

DRUGS (4)
  1. VIRAMUNE [Suspect]
     Indication: HIV INFECTION
     Dosage: 400 MG
     Route: 048
     Dates: start: 20100416, end: 20100507
  2. VIRAMUNE [Suspect]
     Dosage: 200 MG
     Route: 048
     Dates: start: 20100402, end: 20100415
  3. TRUVADA [Concomitant]
     Indication: HIV INFECTION
     Route: 048
     Dates: start: 20090525
  4. AMOXICILLIN [Concomitant]
     Indication: TONSILLITIS
     Dosage: 2 G
     Dates: start: 20100505, end: 20100507

REACTIONS (5)
  - FEELING ABNORMAL [None]
  - LEUKOPENIA [None]
  - LYMPHADENOPATHY [None]
  - PYREXIA [None]
  - TONSILLITIS [None]
